FAERS Safety Report 16026477 (Version 2)
Quarter: 2020Q1

REPORT INFORMATION
  Report Type: Spontaneous
  Country: US (occurrence: US)
  Receive Date: 20190302
  Receipt Date: 20200303
  Transmission Date: 20200409
  Serious: No
  Sender: FDA-Public Use
  Company Number: US-NOVOPROD-640497

PATIENT
  Age: 67 Year
  Sex: Female
  Weight: 112.02 kg

DRUGS (2)
  1. VICTOZA [Suspect]
     Active Substance: LIRAGLUTIDE
     Indication: TYPE 2 DIABETES MELLITUS
     Dosage: 0.6 MG, QD
     Route: 058
     Dates: start: 20171223, end: 201812
  2. VICTOZA [Suspect]
     Active Substance: LIRAGLUTIDE
     Dosage: 0.6 MG, QD
     Route: 058
     Dates: start: 201812, end: 20181207

REACTIONS (7)
  - Back pain [Unknown]
  - Back pain [Recovered/Resolved]
  - Cough [Not Recovered/Not Resolved]
  - Abdominal pain upper [Unknown]
  - Headache [Recovered/Resolved]
  - Tremor [Recovering/Resolving]
  - Constipation [Recovered/Resolved]

NARRATIVE: CASE EVENT DATE: 2018
